FAERS Safety Report 18741263 (Version 2)
Quarter: 2021Q1

REPORT INFORMATION
  Report Type: Spontaneous
  Country: US (occurrence: US)
  Receive Date: 20210114
  Receipt Date: 20210203
  Transmission Date: 20210419
  Serious: Yes (Other)
  Sender: FDA-Public Use
  Company Number: US-AMGEN-USASP2021004381

PATIENT
  Sex: Female

DRUGS (2)
  1. CORLANOR [Suspect]
     Active Substance: IVABRADINE HYDROCHLORIDE
     Indication: PRODUCT USED FOR UNKNOWN INDICATION
     Dosage: 5 MILLIGRAM, QD (EVERY MORNING)
     Route: 065
  2. CORLANOR [Suspect]
     Active Substance: IVABRADINE HYDROCHLORIDE
     Dosage: USED TO SPLIT 5MG TABLETS TO TAKE AN EXTRA 2.5 MG AT NIGHT
     Route: 065

REACTIONS (3)
  - Gastrointestinal tube insertion [Unknown]
  - Inappropriate schedule of product administration [Unknown]
  - Impaired gastric emptying [Unknown]
